FAERS Safety Report 5450226-3 (Version None)
Quarter: 2007Q3

REPORT INFORMATION
  Report Type: 
  Country: None (occurrence: None)
  Receive Date: 20070912
  Receipt Date: 20070903
  Transmission Date: 20080115
  Serious: Yes (Other)
  Sender: FDA-Public Use
  Company Number: PHBS2007ES14896

PATIENT
  Age: 63 Year
  Sex: Male

DRUGS (1)
  1. TEGRETOL [Suspect]
     Indication: BRAIN NEOPLASM
     Dosage: 200 MG, TID

REACTIONS (1)
  - CONVULSION [None]
